FAERS Safety Report 14974507 (Version 2)
Quarter: 2018Q2

REPORT INFORMATION
  Report Type: Spontaneous
  Country: US (occurrence: US)
  Receive Date: 20180605
  Receipt Date: 20180615
  Transmission Date: 20180711
  Serious: No
  Sender: FDA-Public Use
  Company Number: US-VIFOR (INTERNATIONAL) INC.-VIT-2018-05182

PATIENT
  Age: 51 Year
  Sex: Male

DRUGS (17)
  1. METFORMIN HYDROCHLORIDE. [Concomitant]
     Active Substance: METFORMIN HYDROCHLORIDE
  2. GABAPENTIN. [Concomitant]
     Active Substance: GABAPENTIN
  3. COLECALCIFEROL~~MAGNESIUM~~CALCIUM [Concomitant]
  4. ZINC. [Concomitant]
     Active Substance: ZINC
  5. VELTASSA [Suspect]
     Active Substance: PATIROMER
     Indication: HYPERKALAEMIA
     Route: 048
     Dates: end: 2018
  6. LORATADINE. [Concomitant]
     Active Substance: LORATADINE
  7. FUROSEMIDE. [Concomitant]
     Active Substance: FUROSEMIDE
  8. MAGNESIUM OXIDE. [Concomitant]
     Active Substance: MAGNESIUM OXIDE
  9. FERROUS SULFATE. [Concomitant]
     Active Substance: FERROUS SULFATE
  10. ATORVASTATIN CALCIUM. [Concomitant]
     Active Substance: ATORVASTATIN CALCIUM
  11. AMLODIPINE BESILATE [Concomitant]
     Active Substance: AMLODIPINE BESYLATE
  12. WARFARIN SODIUM. [Concomitant]
     Active Substance: WARFARIN SODIUM
  13. IMATINIB MESILATE [Concomitant]
     Active Substance: IMATINIB MESYLATE
  14. PROBIOTIC [Concomitant]
     Active Substance: PROBIOTICS NOS
  15. BACLOFEN. [Concomitant]
     Active Substance: BACLOFEN
  16. ASCORBIC ACID. [Concomitant]
     Active Substance: ASCORBIC ACID
  17. ONE A DAY MENS [Concomitant]
     Active Substance: VITAMINS

REACTIONS (1)
  - Living in residential institution [Unknown]

NARRATIVE: CASE EVENT DATE: 201805
